FAERS Safety Report 15451445 (Version 1)
Quarter: 2018Q4

REPORT INFORMATION
  Report Type: Spontaneous
  Country: DE (occurrence: DE)
  Receive Date: 20181001
  Receipt Date: 20181001
  Transmission Date: 20190204
  Serious: Yes (Hospitalization, Other)
  Sender: FDA-Public Use
  Company Number: PHHY2018DE110769

PATIENT
  Age: 54 Year
  Sex: Female

DRUGS (12)
  1. BISOPROLOL [Suspect]
     Active Substance: BISOPROLOL
     Indication: PRODUCT USED FOR UNKNOWN INDICATION
     Dosage: 5 MG, QD
     Route: 048
     Dates: start: 2015, end: 20171111
  2. SERTINDOLE [Suspect]
     Active Substance: SERTINDOLE
     Dosage: 16 MG, QD
     Route: 065
     Dates: start: 20171115, end: 20171128
  3. SERTINDOLE [Suspect]
     Active Substance: SERTINDOLE
     Dosage: 8 MG, QD
     Route: 065
     Dates: start: 20171107, end: 20171110
  4. BISOPROLOL [Suspect]
     Active Substance: BISOPROLOL
     Dosage: 2.5 MG, QD
     Route: 048
     Dates: start: 20171112, end: 20171120
  5. SERTINDOLE [Suspect]
     Active Substance: SERTINDOLE
     Indication: PRODUCT USED FOR UNKNOWN INDICATION
     Dosage: 4 MG, UNK
     Route: 048
  6. SERTINDOLE [Suspect]
     Active Substance: SERTINDOLE
     Dosage: 8 MG, QD
     Route: 065
     Dates: start: 20171129
  7. DIAZEPAM. [Concomitant]
     Active Substance: DIAZEPAM
     Dosage: 20 MG, QD
     Route: 065
     Dates: start: 20171104, end: 20171113
  8. DIAZEPAM. [Concomitant]
     Active Substance: DIAZEPAM
     Dosage: 15 MG, QD
     Route: 065
     Dates: start: 20171114, end: 20171115
  9. SERTINDOLE [Suspect]
     Active Substance: SERTINDOLE
     Dosage: 12 MG, QD
     Route: 065
     Dates: start: 20171111, end: 20171114
  10. DIAZEPAM. [Concomitant]
     Active Substance: DIAZEPAM
     Dosage: 12.5 MG, QD
     Route: 065
     Dates: start: 20171116, end: 20171118
  11. DIAZEPAM. [Concomitant]
     Active Substance: DIAZEPAM
     Indication: PRODUCT USED FOR UNKNOWN INDICATION
     Dosage: 10 MG, QD
     Route: 048
     Dates: start: 20171028, end: 20171031
  12. DIAZEPAM. [Concomitant]
     Active Substance: DIAZEPAM
     Dosage: 12.5 MG, QD
     Dates: start: 20171101, end: 20171103

REACTIONS (2)
  - Arrhythmia [Recovered/Resolved]
  - Electrocardiogram QT prolonged [Recovered/Resolved]

NARRATIVE: CASE EVENT DATE: 20171117
